FAERS Safety Report 9243465 (Version 2)
Quarter: 2013Q3

REPORT INFORMATION
  Report Type: Spontaneous
  Country: US (occurrence: US)
  Receive Date: 20130422
  Receipt Date: 20130829
  Transmission Date: 20140515
  Serious: Yes (Other)
  Sender: FDA-Public Use
  Company Number: US-AMGEN-USASP2013027057

PATIENT
  Age: 42 Year
  Sex: Female

DRUGS (5)
  1. ENBREL [Suspect]
     Indication: PSORIATIC ARTHROPATHY
     Dosage: 50 MG, QWK
     Route: 058
     Dates: start: 20040101, end: 201307
  2. XANAX [Concomitant]
     Dosage: 0.5 MG, UNK
  3. MOBIC [Concomitant]
     Dosage: 7.5 MG, UNK
  4. MULTIVITAMINS, PLAIN [Concomitant]
     Dosage: UNK
  5. MELATONIN [Concomitant]
     Dosage: 1 MG, UNK

REACTIONS (4)
  - Radius fracture [Unknown]
  - Fall [Unknown]
  - Inflammation [Unknown]
  - Osteoporosis [Unknown]
